FAERS Safety Report 9371905 (Version 2)
Quarter: 2014Q1

REPORT INFORMATION
  Report Type: Spontaneous
  Country: AT (occurrence: AT)
  Receive Date: 20130627
  Receipt Date: 20140227
  Transmission Date: 20141002
  Serious: Yes (Other)
  Sender: FDA-Public Use
  Company Number: AT-PFIZER INC-2013189860

PATIENT
  Age: 65 Year
  Sex: Female

DRUGS (23)
  1. PANTOLOC [Suspect]
     Dosage: 20 MG, 1X/DAY
     Route: 065
     Dates: start: 2012, end: 20130329
  2. PANTOLOC [Suspect]
     Dosage: 40 MG, 1X/DAY
     Route: 065
     Dates: start: 20130330
  3. EFECTIN ER [Suspect]
     Dosage: 150 MG (150 MG,DOSE INCREASED)
     Route: 065
     Dates: start: 201210, end: 20130311
  4. EFECTIN ER [Suspect]
     Dosage: 225 MG, 1X/DAY
     Route: 065
     Dates: start: 20130312, end: 20130423
  5. LAMICTAL [Suspect]
     Dosage: 200 MG, 1X/DAY
     Route: 065
     Dates: start: 201210, end: 20130417
  6. LAMICTAL [Suspect]
     Dosage: 100MG. UNK
     Route: 065
     Dates: start: 20130418, end: 20130422
  7. SEROQUEL [Suspect]
     Dosage: 200 MG, 1X/DAY
     Route: 065
     Dates: start: 20130307, end: 20130310
  8. SEROQUEL [Suspect]
     Dosage: 300 MG, 1X/DAY
     Route: 065
     Dates: start: 20130311, end: 20130314
  9. SEROQUEL XR [Suspect]
     Dosage: 400 MG, 1X/DAY
     Dates: start: 20130314, end: 20130514
  10. ACEMIN [Suspect]
     Dosage: 2.5 MG, UNK
     Route: 065
     Dates: start: 20130324, end: 20130429
  11. PLAVIX [Suspect]
     Dosage: 75 MG, 1X/DAY
     Route: 065
     Dates: start: 20130325
  12. DEPAKINE [Suspect]
     Dosage: 500 MG, 1X/DAY
     Route: 065
     Dates: start: 20130404, end: 20130407
  13. DEPAKINE [Suspect]
     Dosage: 750 MG, 1X/DAY
     Route: 065
     Dates: start: 20130408, end: 20130410
  14. DEPAKINE [Suspect]
     Dosage: 500 MG, 1X/DAY
     Route: 065
     Dates: start: 20130411, end: 20130425
  15. SORTIS [Concomitant]
     Dosage: 20 MG, 1X/DAY
     Dates: start: 2012, end: 20130321
  16. SORTIS [Concomitant]
     Dosage: 40 MG, 1X/DAY
     Dates: start: 20130322, end: 20130524
  17. SORTIS [Concomitant]
     Dosage: 80 MG, 1X/DAY
     Dates: start: 20130325
  18. MAGNOSOLV ^ASTA MEDICA^ [Concomitant]
     Dosage: 2 DF, 1X/DAY
     Dates: start: 2012
  19. NOCUTIL [Concomitant]
     Dosage: 0.1 MG, UNK
     Dates: start: 2012
  20. FOLSAN [Concomitant]
     Dosage: 5 MG, 1X/DAY
     Dates: start: 2012
  21. NEUROBION FORTE [Concomitant]
     Dosage: 2 DF, 1X/DAY
     Route: 042
     Dates: start: 2012
  22. NITROLINGUAL [Concomitant]
     Dosage: 1 DF, UNK
     Dates: start: 2012
  23. ZOLDEM [Concomitant]
     Dosage: 10 MG, 1X/DAY
     Dates: start: 20130318, end: 20130513

REACTIONS (1)
  - Dysgeusia [Recovering/Resolving]
